FAERS Safety Report 19616228 (Version 2)
Quarter: 2021Q3

REPORT INFORMATION
  Report Type: Spontaneous
  Country: FR (occurrence: FR)
  Receive Date: 20210728
  Receipt Date: 20210729
  Transmission Date: 20211014
  Serious: Yes (Hospitalization)
  Sender: FDA-Public Use
  Company Number: FR-UCBSA-2021034657

PATIENT
  Age: 43 Year
  Sex: Male
  Weight: 70 kg

DRUGS (8)
  1. LANSOPRAZOLE ARROW [Concomitant]
     Active Substance: LANSOPRAZOLE
     Indication: PRODUCT USED FOR UNKNOWN INDICATION
     Dosage: INCONNUE
     Route: 048
     Dates: start: 2021, end: 20210616
  2. ESOMEPRAZOLE. [Suspect]
     Active Substance: ESOMEPRAZOLE MAGNESIUM
     Indication: PRODUCT USED FOR UNKNOWN INDICATION
     Dosage: UNKNOWN
     Route: 048
     Dates: start: 2021, end: 20210616
  3. MEDROL [Concomitant]
     Active Substance: METHYLPREDNISOLONE
     Indication: PRODUCT USED FOR UNKNOWN INDICATION
     Route: 048
     Dates: start: 20210319
  4. KEPPRA [Suspect]
     Active Substance: LEVETIRACETAM
     Indication: EPILEPSY
     Dosage: 1 GRAM, DAILY
     Route: 048
     Dates: start: 20210527, end: 20210616
  5. BELUSTINE [Suspect]
     Active Substance: LOMUSTINE
     Indication: ANAPLASTIC ASTROCYTOMA
     Dosage: 160 MILLIGRAM, EV 6 WEEKS
     Route: 048
     Dates: start: 20210427, end: 20210609
  6. ZOPICLONE [Suspect]
     Active Substance: ZOPICLONE
     Indication: SLEEP DISORDER
     Dosage: UNKNOWN
     Route: 048
     Dates: start: 202105, end: 20210616
  7. VINCRISTINE SULPHATE [Suspect]
     Active Substance: VINCRISTINE SULFATE
     Indication: ANAPLASTIC ASTROCYTOMA
     Dosage: 2 MILLIGRAM, EV 3 WEEKS
     Route: 042
     Dates: start: 20210504, end: 20210527
  8. NATULAN [Suspect]
     Active Substance: PROCARBAZINE HYDROCHLORIDE
     Indication: ANAPLASTIC ASTROCYTOMA
     Dosage: 100 MILLIGRAM, DAILY
     Route: 048
     Dates: start: 20210504, end: 20210517

REACTIONS (2)
  - Toxic skin eruption [Recovering/Resolving]
  - Hepatic enzyme increased [Recovering/Resolving]

NARRATIVE: CASE EVENT DATE: 20210614
